FAERS Safety Report 7622044-9 (Version None)
Quarter: 2011Q3

REPORT INFORMATION
  Report Type: 
  Country: None (occurrence: None)
  Receive Date: 20110720
  Receipt Date: 20110118
  Transmission Date: 20111222
  Serious: Yes (Hospitalization, Other)
  Sender: FDA-Public Use
  Company Number: US-BAYER-201019913NA

PATIENT
  Age: 20 Year
  Sex: Female
  Weight: 176 kg

DRUGS (6)
  1. MOTRIN [Concomitant]
     Indication: DYSMENORRHOEA
     Dosage: UNK
     Dates: start: 20040101
  2. YASMIN [Suspect]
     Indication: ORAL CONTRACEPTION
     Dosage: UNK UNK, QD
     Route: 048
     Dates: start: 20040701, end: 20050701
  3. LEVOTHYROXINE SODIUM [Concomitant]
     Dosage: 150 ?G, QD
     Dates: start: 19980101
  4. YASMIN [Suspect]
     Indication: PREMENSTRUAL SYNDROME
     Dosage: UNK
     Dates: start: 20080301, end: 20080401
  5. SYNTHROID [Concomitant]
     Dosage: 150 ?G, QD
  6. PROTONIX [Concomitant]
     Dosage: 40 MG, QD
     Route: 048
     Dates: start: 20090119

REACTIONS (5)
  - PULMONARY INFARCTION [None]
  - DYSPNOEA [None]
  - CHEST PAIN [None]
  - PULMONARY EMBOLISM [None]
  - OVARIAN CYST RUPTURED [None]
